FAERS Safety Report 4294537-6 (Version None)
Quarter: 2004Q1

REPORT INFORMATION
  Report Type: 
  Country: None (occurrence: None)
  Receive Date: 20040211
  Receipt Date: 20040129
  Transmission Date: 20041129
  Serious: Yes (Death, Hospitalization)
  Sender: FDA-Public Use
  Company Number: MORS000068

PATIENT
  Age: 44 Year
  Sex: Female

DRUGS (3)
  1. MORPHINE SULFATE [Suspect]
     Indication: DRUG USE FOR UNKNOWN INDICATION
     Dosage: 120 MG/DAY ORAL
     Route: 048
  2. FENTANYL [Suspect]
     Indication: DRUG USE FOR UNKNOWN INDICATION
     Dosage: 225 MCG/HR TRANSDERMAL
     Route: 062
  3. DIAZEPAM [Concomitant]

REACTIONS (11)
  - AGITATION [None]
  - BLOOD UREA INCREASED [None]
  - BRONCHOPNEUMONIA [None]
  - CONFUSIONAL STATE [None]
  - HYPERCALCAEMIA [None]
  - LOWER RESPIRATORY TRACT INFECTION [None]
  - METASTASES TO BONE [None]
  - METASTASES TO LIVER [None]
  - RESPIRATORY DEPRESSION [None]
  - SEDATION [None]
  - SOMNOLENCE [None]
